FAERS Safety Report 5254351-1 (Version None)
Quarter: 2007Q1

REPORT INFORMATION
  Report Type: 
  Country: None (occurrence: None)
  Receive Date: 20070302
  Receipt Date: 20070219
  Transmission Date: 20070707
  Serious: Yes (Hospitalization)
  Sender: FDA-Public Use
  Company Number: FR-JNJFOC-20070204668

PATIENT
  Age: 16 Year
  Sex: Male

DRUGS (10)
  1. TMC114 [Suspect]
     Route: 048
  2. TMC114 [Suspect]
     Indication: HIV INFECTION
     Route: 048
  3. MK0518/PLACEBO [Suspect]
     Route: 048
  4. MK0518/PLACEBO [Suspect]
     Indication: HIV INFECTION
     Route: 048
  5. RITONAVIR [Suspect]
     Indication: HIV INFECTION
     Route: 065
  6. DIDANOSINE [Concomitant]
     Indication: HIV INFECTION
     Route: 065
  7. KALETRA [Concomitant]
     Route: 065
  8. LEXIVA [Concomitant]
     Route: 065
  9. FLUCONAZOLE [Concomitant]
     Route: 065
  10. SULFAMETHOXAZOLE AND TRIMETHOPRIM [Concomitant]
     Route: 065

REACTIONS (4)
  - COLITIS ULCERATIVE [None]
  - DIARRHOEA [None]
  - IMMUNE RECONSTITUTION SYNDROME [None]
  - WEIGHT DECREASED [None]
